FAERS Safety Report 23644079 (Version 2)
Quarter: 2024Q2

REPORT INFORMATION
  Report Type: Spontaneous
  Country: US (occurrence: US)
  Receive Date: 20240318
  Receipt Date: 20240401
  Transmission Date: 20240716
  Serious: No
  Sender: FDA-Public Use
  Company Number: US-Calliditas-2024CAL00429

PATIENT
  Age: 49 Year
  Sex: Male

DRUGS (9)
  1. TARPEYO [Suspect]
     Active Substance: BUDESONIDE
     Indication: Haematuria
     Route: 048
     Dates: start: 20221117
  2. KERENDIA [Suspect]
     Active Substance: FINERENONE
     Indication: Product used for unknown indication
  3. FILSPARI [Concomitant]
     Active Substance: SPARSENTAN
  4. CHLORTHALIDONE [Concomitant]
     Active Substance: CHLORTHALIDONE
  5. MOUNJARO [Concomitant]
     Active Substance: TIRZEPATIDE
  6. CHOLECALCIFEROL [Concomitant]
     Active Substance: CHOLECALCIFEROL
  7. ALLOPURINOL [Concomitant]
     Active Substance: ALLOPURINOL
  8. VITAMINS [Concomitant]
     Active Substance: VITAMINS
  9. IRON [Concomitant]
     Active Substance: IRON

REACTIONS (2)
  - Hyperkalaemia [Recovered/Resolved]
  - Dyspnoea [Recovered/Resolved]

NARRATIVE: CASE EVENT DATE: 20240307
